FAERS Safety Report 5974693-1 (Version None)
Quarter: 2008Q4

REPORT INFORMATION
  Report Type: 
  Country: None (occurrence: None)
  Receive Date: 20081201
  Receipt Date: 20081125
  Transmission Date: 20090506
  Serious: Yes (Other)
  Sender: FDA-Public Use
  Company Number: US-PFIZER INC-2008100290

PATIENT
  Sex: Male
  Weight: 113.63 kg

DRUGS (11)
  1. LYRICA [Suspect]
     Indication: NECK PAIN
     Dates: start: 20081101, end: 20081125
  2. LYRICA [Suspect]
     Indication: BACK PAIN
  3. REYATAZ [Concomitant]
  4. NORVIR [Concomitant]
  5. TRUVADA [Concomitant]
  6. LEXAPRO [Concomitant]
  7. METOPROLOL TARTRATE [Concomitant]
  8. VITAMIN TAB [Concomitant]
  9. SKELAXIN [Concomitant]
  10. VALIUM [Concomitant]
  11. CRESTOR [Concomitant]

REACTIONS (1)
  - OEDEMA MOUTH [None]
